FAERS Safety Report 23692523 (Version 1)
Quarter: 2024Q1

REPORT INFORMATION
  Report Type: Spontaneous
  Country: US (occurrence: None)
  Receive Date: 20240330
  Receipt Date: 20240330
  Transmission Date: 20240410
  Serious: Yes (Life-Threatening, Other)
  Sender: FDA-Public Use
  Company Number: None

PATIENT
  Age: 77 Year
  Sex: Male
  Weight: 90 kg

DRUGS (13)
  1. PROMETHAZINE [Suspect]
     Active Substance: PROMETHAZINE HYDROCHLORIDE
     Indication: Multiple allergies
     Dosage: OTHER QUANTITY : 5 ML?FREQUENCY : EVERY 6 HOURS?
     Route: 048
     Dates: start: 20240328, end: 20240329
  2. METOPROLOL [Concomitant]
     Active Substance: METOPROLOL
  3. rosuvistatin [Concomitant]
  4. aspirin [Concomitant]
  5. TAMSULOSIN [Concomitant]
  6. DEVICE [Concomitant]
     Active Substance: DEVICE
  7. Daily Essentials for Men [Concomitant]
  8. CoQ10 with Lipic Acid [Concomitant]
  9. Pro NAC [Concomitant]
  10. GI Replenish [Concomitant]
  11. GI Replace [Concomitant]
  12. Gi Repair [Concomitant]
  13. carnitine tartrate [Concomitant]

REACTIONS (6)
  - Hyperhidrosis [None]
  - Flushing [None]
  - Fall [None]
  - Loss of consciousness [None]
  - Head injury [None]
  - Haemorrhage [None]

NARRATIVE: CASE EVENT DATE: 20240329
